FAERS Safety Report 20458287 (Version 4)
Quarter: 2022Q1

REPORT INFORMATION
  Report Type: Spontaneous
  Country: US (occurrence: US)
  Receive Date: 20220211
  Receipt Date: 20220225
  Transmission Date: 20220423
  Serious: Yes (Other)
  Sender: FDA-Public Use
  Company Number: US-SA-SAC20220207000400

PATIENT
  Age: 72 Year
  Sex: Female

DRUGS (2)
  1. DUPIXENT [Suspect]
     Active Substance: DUPILUMAB
     Indication: Dermatitis atopic
     Dosage: 2 DF, 1X
  2. DUPIXENT [Suspect]
     Active Substance: DUPILUMAB
     Dosage: 300 MG, QOW
     Route: 058
     Dates: start: 202104

REACTIONS (10)
  - Bipolar disorder [Unknown]
  - Dizziness [Unknown]
  - Lethargy [Unknown]
  - Abdominal discomfort [Unknown]
  - Taste disorder [Unknown]
  - Diarrhoea [Unknown]
  - Headache [Unknown]
  - Anxiety [Unknown]
  - Blood pressure increased [Unknown]
  - Malaise [Unknown]
